FAERS Safety Report 8487854-7 (Version None)
Quarter: 2012Q3

REPORT INFORMATION
  Report Type: 
  Country: None (occurrence: None)
  Receive Date: 20120705
  Receipt Date: 20120626
  Transmission Date: 20120928
  Serious: Yes (Hospitalization, Other)
  Sender: FDA-Public Use
  Company Number: US-US-EMD SERONO, INC.-7097323

PATIENT
  Sex: Male
  Weight: 90 kg

DRUGS (2)
  1. REBIF [Suspect]
     Route: 058
     Dates: start: 20120501
  2. REBIF [Suspect]
     Indication: MULTIPLE SCLEROSIS
     Route: 058
     Dates: start: 20111019, end: 20111101

REACTIONS (4)
  - EJECTION FRACTION DECREASED [None]
  - HAEMOGLOBIN DECREASED [None]
  - ATRIAL FIBRILLATION [None]
  - INAPPROPRIATE SCHEDULE OF DRUG ADMINISTRATION [None]
